FAERS Safety Report 4339829-7 (Version None)
Quarter: 2004Q2

REPORT INFORMATION
  Report Type: 
  Country: None (occurrence: None)
  Receive Date: 20040412
  Receipt Date: 20040330
  Transmission Date: 20050107
  Serious: No
  Sender: FDA-Public Use
  Company Number: 2004AP02027

PATIENT
  Age: 71 Year
  Sex: Female

DRUGS (8)
  1. OMEPRAZOLE [Suspect]
     Indication: GASTRIC ULCER
     Dosage: 10 MG DAILY PO
     Route: 048
     Dates: start: 20040120, end: 20040228
  2. AMLODIPINE [Concomitant]
  3. MERISLON [Concomitant]
  4. LORAZEPAM [Concomitant]
  5. GANATON [Concomitant]
  6. LOCHOL [Concomitant]
  7. ALOSENN [Concomitant]
  8. VASOLAN [Concomitant]

REACTIONS (1)
  - BRONCHOSPASM [None]
